FAERS Safety Report 9507753 (Version 1)
Quarter: 2013Q3

REPORT INFORMATION
  Report Type: Spontaneous
  Country: US (occurrence: None)
  Receive Date: 20130906
  Receipt Date: 20130906
  Transmission Date: 20140515
  Serious: Yes (Other)
  Sender: FDA-Public Use
  Company Number: None

PATIENT
  Age: 7 Month
  Sex: Female

DRUGS (1)
  1. ACETAMINOPHEN [Suspect]

REACTIONS (5)
  - Chills [None]
  - Hypoaesthesia oral [None]
  - Hypoaesthesia oral [None]
  - Product taste abnormal [None]
  - Product physical issue [None]
